FAERS Safety Report 4325250-4 (Version None)
Quarter: 2004Q1

REPORT INFORMATION
  Report Type: 
  Country: None (occurrence: None)
  Receive Date: 20040324
  Receipt Date: 20040219
  Transmission Date: 20041129
  Serious: Yes (Other)
  Sender: FDA-Public Use
  Company Number: 430005X04ITA

PATIENT
  Age: 33 Year
  Sex: Female

DRUGS (4)
  1. NOVANTRONE [Suspect]
     Indication: ACUTE PROMYELOCYTIC LEUKAEMIA
     Dosage: 15 MG, 1 IN 1 DAYS
     Dates: start: 20040110, end: 20040114
  2. ANTINEOPLASTIC AGENTS [Suspect]
  3. TRETINOIN [Suspect]
     Indication: ACUTE PROMYELOCYTIC LEUKAEMIA
     Dosage: 70 MG, 1 IN 1 DAYS
     Dates: start: 20040110, end: 20040123
  4. ETOPOSIDE [Suspect]
     Indication: ACUTE PROMYELOCYTIC LEUKAEMIA
     Dosage: 150 MG, 1 IN 1 DAYS
     Dates: start: 20040110, end: 20040114

REACTIONS (2)
  - LEUKOPENIA [None]
  - THROMBOCYTOPENIA [None]
